FAERS Safety Report 15409248 (Version 1)
Quarter: 2018Q3

REPORT INFORMATION
  Report Type: Spontaneous
  Country: GB (occurrence: GB)
  Receive Date: 20180920
  Receipt Date: 20180920
  Transmission Date: 20181010
  Serious: Yes (Other)
  Sender: FDA-Public Use
  Company Number: GB-MYLANLABS-2018M1069182

PATIENT
  Age: 82 Year
  Sex: Male
  Weight: 69.85 kg

DRUGS (8)
  1. MEMANTINE. [Suspect]
     Active Substance: MEMANTINE
     Dosage: 10 MG, QD (5MG FOR THE FIRST 2 WEEKS (ALONG WITH 5MG OF DONEPEZIL) THEN 10MG PER DAY)
     Route: 048
     Dates: start: 20180326, end: 20180407
  2. ATORVASTATIN [Concomitant]
     Active Substance: ATORVASTATIN
     Indication: PRODUCT USED FOR UNKNOWN INDICATION
     Dosage: 20 MG, UNK
  3. CLOPIDOGREL [Concomitant]
     Active Substance: CLOPIDOGREL BISULFATE
     Indication: PRODUCT USED FOR UNKNOWN INDICATION
     Dosage: 75 MG, UNK
  4. PANTOPRAZOLE [Concomitant]
     Active Substance: PANTOPRAZOLE
     Indication: PRODUCT USED FOR UNKNOWN INDICATION
     Dosage: 20 MG, UNK
  5. DONEPEZIL. [Concomitant]
     Active Substance: DONEPEZIL
     Indication: PRODUCT USED FOR UNKNOWN INDICATION
     Dosage: 5 MG, QD (ALONGSIDE MEMANTINE FOR 2 WEEKS)
  6. LAXIDO [Concomitant]
     Active Substance: POLYETHYLENE GLYCOL 3350\POTASSIUM CHLORIDE\SODIUM BICARBONATE\SODIUM CHLORIDE
     Indication: PRODUCT USED FOR UNKNOWN INDICATION
     Dosage: UNK
  7. AMLODIPINE [Concomitant]
     Active Substance: AMLODIPINE BESYLATE
     Indication: PRODUCT USED FOR UNKNOWN INDICATION
     Dosage: 5 MG, UNK
  8. MEMANTINE. [Suspect]
     Active Substance: MEMANTINE
     Indication: ANXIETY
     Dosage: 5 MG, QD (5MG FOR THE FIRST 2 WEEKS (ALONG WITH 5MG OF DONEPEZIL) THEN 10MG PER DAY)
     Route: 048
     Dates: start: 20180312, end: 20180325

REACTIONS (11)
  - Skin exfoliation [Recovered/Resolved]
  - Dyskinesia [Recovered/Resolved]
  - Asthenia [Recovered/Resolved]
  - Swelling face [Recovered/Resolved]
  - Fatigue [Recovered/Resolved]
  - Muscular weakness [Recovered/Resolved]
  - Contusion [Recovered/Resolved]
  - Tension [Recovered/Resolved]
  - Agitation [Unknown]
  - Yellow skin [Recovered/Resolved]
  - Tardive dyskinesia [Recovered/Resolved]

NARRATIVE: CASE EVENT DATE: 20180315
